FAERS Safety Report 5296332-8 (Version None)
Quarter: 2007Q2

REPORT INFORMATION
  Report Type: 
  Country: None (occurrence: None)
  Receive Date: 20070413
  Receipt Date: 20070406
  Transmission Date: 20071010
  Serious: Yes (Hospitalization)
  Sender: FDA-Public Use
  Company Number: 2004AP06449

PATIENT
  Age: 21554 Day
  Sex: Female
  Weight: 50.3 kg

DRUGS (4)
  1. ROSUVASTATIN CALCIUM [Suspect]
     Indication: HYPERLIPIDAEMIA
     Route: 048
     Dates: start: 20041020, end: 20041207
  2. URINORM [Concomitant]
     Indication: HYPERURICAEMIA
     Route: 048
     Dates: start: 20040707, end: 20041222
  3. TENORMIN [Concomitant]
     Indication: HYPERTENSION
     Route: 048
     Dates: start: 20040707
  4. CONIEL [Concomitant]
     Indication: HYPERTENSION
     Route: 048
     Dates: start: 20041114

REACTIONS (1)
  - AUTOIMMUNE HEPATITIS [None]
